FAERS Safety Report 15898563 (Version 1)
Quarter: 2019Q1

REPORT INFORMATION
  Report Type: Spontaneous
  Country: US (occurrence: US)
  Receive Date: 20190201
  Receipt Date: 20190201
  Transmission Date: 20190417
  Serious: No
  Sender: FDA-Public Use
  Company Number: US-LEO PHARMA-316544

PATIENT
  Age: 70 Year
  Sex: Male

DRUGS (1)
  1. PICATO [Suspect]
     Active Substance: INGENOL MEBUTATE
     Indication: PRODUCT USE IN UNAPPROVED INDICATION
     Dosage: APPLY DAILY
     Route: 061
     Dates: start: 20190123, end: 20190125

REACTIONS (4)
  - Application site exfoliation [Not Recovered/Not Resolved]
  - Product use in unapproved indication [Unknown]
  - Application site dryness [Not Recovered/Not Resolved]
  - Application site erythema [Recovering/Resolving]

NARRATIVE: CASE EVENT DATE: 20190123
